FAERS Safety Report 6395660-2 (Version None)
Quarter: 2009Q4

REPORT INFORMATION
  Report Type: 
  Country: None (occurrence: None)
  Receive Date: 20091009
  Receipt Date: 20091001
  Transmission Date: 20100525
  Serious: Yes (Hospitalization)
  Sender: FDA-Public Use
  Company Number: PT-AVENTIS-200915834EU

PATIENT
  Age: 68 Year
  Sex: Female
  Weight: 74 kg

DRUGS (12)
  1. ENOXAPARIN SODIUM [Suspect]
     Route: 058
     Dates: start: 20090731, end: 20090810
  2. PERINDOPRIL [Concomitant]
     Dates: start: 20090729, end: 20090811
  3. INSULIN [Concomitant]
     Dates: start: 20090729, end: 20090806
  4. INSULIN [Concomitant]
     Dates: start: 20090803, end: 20090806
  5. INSULIN [Concomitant]
     Dates: start: 20090808, end: 20090811
  6. METOCLOPRAMIDE [Concomitant]
     Dates: start: 20090729, end: 20090811
  7. PENTOXIFILINA [Concomitant]
     Dates: start: 20090729, end: 20090811
  8. TRAMADOL HCL [Concomitant]
     Dates: start: 20090729, end: 20090811
  9. ACETAMINOPHEN [Concomitant]
     Dates: start: 20090730, end: 20090811
  10. CEFAZOLIN [Concomitant]
     Dates: start: 20090731, end: 20090811
  11. GENTAMICIN [Concomitant]
     Dates: start: 20090731, end: 20090802
  12. GENTAMICIN [Concomitant]
     Dates: start: 20090704, end: 20090810

REACTIONS (1)
  - RENAL FAILURE ACUTE [None]
